FAERS Safety Report 9732500 (Version 2)
Quarter: 2014Q2

REPORT INFORMATION
  Report Type: Spontaneous
  Country: GR (occurrence: GR)
  Receive Date: 20131205
  Receipt Date: 20140613
  Transmission Date: 20141212
  Serious: Yes (Other)
  Sender: FDA-Public Use
  Company Number: GR-JNJFOC-20131116790

PATIENT
  Age: 35 Year
  Sex: Male

DRUGS (1)
  1. STELARA [Suspect]
     Indication: PSORIASIS
     Route: 058
     Dates: start: 201203, end: 201401

REACTIONS (2)
  - Mycobacterium tuberculosis complex test positive [Unknown]
  - Rash [Not Recovered/Not Resolved]
